FAERS Safety Report 5586235-3 (Version None)
Quarter: 2007Q4

REPORT INFORMATION
  Report Type: 
  Country: None (occurrence: None)
  Receive Date: 20071205
  Receipt Date: 20061215
  Transmission Date: 20080405
  Serious: Yes (Other)
  Sender: FDA-Public Use
  Company Number: HQWYE776121DEC06

PATIENT
  Age: 33 Week
  Sex: Male

DRUGS (2)
  1. EFFEXOR XR [Suspect]
     Indication: DEPRESSION
     Dosage: 150 MG 1X PER 1 DAY, TRANSPLACENTAL ; 300 MG 1X PER 1 DAY, TRANSPLACENTAL
     Route: 064
     Dates: start: 20020101, end: 20051101
  2. EFFEXOR XR [Suspect]
     Indication: DEPRESSION
     Dosage: 150 MG 1X PER 1 DAY, TRANSPLACENTAL ; 300 MG 1X PER 1 DAY, TRANSPLACENTAL
     Route: 064
     Dates: start: 20051101, end: 20060701

REACTIONS (1)
  - PREMATURE BABY [None]
